FAERS Safety Report 24981955 (Version 1)
Quarter: 2025Q1

REPORT INFORMATION
  Report Type: Spontaneous
  Country: US (occurrence: US)
  Receive Date: 20250218
  Receipt Date: 20250218
  Transmission Date: 20250408
  Serious: Yes (Hospitalization)
  Sender: ALEXION PHARMACEUTICALS
  Company Number: 202502USA010022US

PATIENT

DRUGS (3)
  1. TEZSPIRE [Suspect]
     Active Substance: TEZEPELUMAB-EKKO
     Indication: Osteoporosis
  2. TEZSPIRE [Suspect]
     Active Substance: TEZEPELUMAB-EKKO
  3. PROLIA [Suspect]
     Active Substance: DENOSUMAB

REACTIONS (4)
  - Cough [Unknown]
  - Headache [Unknown]
  - Asthma [Recovered/Resolved]
  - Dyspnoea [Recovered/Resolved]
